FAERS Safety Report 8836713 (Version 1)
Quarter: 2012Q4

REPORT INFORMATION
  Report Type: Spontaneous
  Country: US (occurrence: None)
  Receive Date: 20121011
  Receipt Date: 20121011
  Transmission Date: 20130627
  Serious: Yes (Hospitalization)
  Sender: FDA-Public Use
  Company Number: None

PATIENT
  Age: 75 Year
  Sex: Male
  Weight: 95.7 kg

DRUGS (2)
  1. LENALIDOMIDE [Suspect]
     Indication: MALIGNANT LYMPHOMA
     Dates: start: 20120808, end: 20120808
  2. EVEROLIMUS [Suspect]
     Dates: start: 20120808, end: 20120828

REACTIONS (3)
  - Platelet count decreased [None]
  - Neutrophil count decreased [None]
  - Deep vein thrombosis [None]
